FAERS Safety Report 4283464-6 (Version None)
Quarter: 2004Q1

REPORT INFORMATION
  Report Type: 
  Country: None (occurrence: None)
  Receive Date: 20040202
  Receipt Date: 20040127
  Transmission Date: 20041129
  Serious: Yes (Death, Hospitalization)
  Sender: FDA-Public Use
  Company Number: 200410355FR

PATIENT
  Age: 30 Year
  Sex: Female

DRUGS (2)
  1. LOVENOX [Suspect]
     Indication: THROMBOSIS PROPHYLAXIS
     Route: 058
     Dates: start: 20000401, end: 20000401
  2. BI-PROFENID [Suspect]
     Indication: ENDOMETRITIS
     Dosage: DOSE UNIT: UNITS
     Route: 048
     Dates: start: 20000401, end: 20000401

REACTIONS (4)
  - DEATH [None]
  - FALL [None]
  - HEMIPLEGIA [None]
  - MENINGORRHAGIA [None]
